FAERS Safety Report 20893455 (Version 1)
Quarter: 2022Q2

REPORT INFORMATION
  Report Type: Spontaneous
  Country: TR (occurrence: TR)
  Receive Date: 20220531
  Receipt Date: 20220531
  Transmission Date: 20220720
  Serious: Yes (Other)
  Sender: FDA-Public Use
  Company Number: TR-LUPIN PHARMACEUTICALS INC.-2022-07748

PATIENT
  Age: 66 Year
  Sex: Male

DRUGS (6)
  1. AZACITIDINE [Suspect]
     Active Substance: AZACITIDINE
     Indication: Acute myeloid leukaemia
     Dosage: UNK (4 CYCLES)
     Route: 065
     Dates: end: 2013
  2. AZACITIDINE [Suspect]
     Active Substance: AZACITIDINE
     Dosage: UNK (RECE)IVED 6 CYCLES
     Route: 065
     Dates: start: 201902
  3. AZACITIDINE [Suspect]
     Active Substance: AZACITIDINE
     Dosage: UNK (IN COMBINATION WITH VENETOCLAX)
     Route: 065
     Dates: start: 202002
  4. VENETOCLAX [Concomitant]
     Active Substance: VENETOCLAX
     Indication: Acute myeloid leukaemia
     Dosage: UNK (5 DAYS RAMP UP: 100; 200; 400 MG)
     Route: 065
     Dates: start: 202002
  5. FLUDARABINE [Concomitant]
     Active Substance: FLUDARABINE PHOSPHATE
     Indication: Acute myeloid leukaemia
     Dosage: 30 MILLIGRAM/SQ. METER, QD (FLAG CHEMOTHERAPY)
     Route: 065
     Dates: start: 2013
  6. CYTARABINE [Concomitant]
     Active Substance: CYTARABINE
     Indication: Acute myeloid leukaemia
     Dosage: 02 GRAM PER SQUARE METRE, QD (FLAG CHEMOTHERAPY) (DAY 1-5)
     Route: 065
     Dates: start: 2013

REACTIONS (2)
  - Drug ineffective for unapproved indication [Unknown]
  - Off label use [Unknown]

NARRATIVE: CASE EVENT DATE: 20130401
